FAERS Safety Report 5519438-4 (Version None)
Quarter: 2007Q4

REPORT INFORMATION
  Report Type: 
  Country: None (occurrence: None)
  Receive Date: 20071116
  Receipt Date: 20071106
  Transmission Date: 20080405
  Serious: Yes (Hospitalization, Other)
  Sender: FDA-Public Use
  Company Number: JP-ROCHE-528438

PATIENT
  Age: 62 Year
  Sex: Female

DRUGS (4)
  1. ROCEPHIN [Suspect]
     Indication: URINARY TRACT INFECTION
     Route: 042
     Dates: start: 20070912, end: 20070912
  2. CALONAL [Concomitant]
     Route: 048
     Dates: start: 20070911, end: 20070913
  3. CRAVIT [Concomitant]
     Route: 048
     Dates: start: 20070911, end: 20070913
  4. MUCOSTA [Concomitant]
     Route: 048
     Dates: start: 20070911, end: 20070913

REACTIONS (3)
  - DRUG ERUPTION [None]
  - LIVER DISORDER [None]
  - NEUROPATHY [None]
